FAERS Safety Report 5694849-5 (Version None)
Quarter: 2008Q2

REPORT INFORMATION
  Report Type: 
  Country: None (occurrence: None)
  Receive Date: 20080404
  Receipt Date: 20080320
  Transmission Date: 20081010
  Serious: Yes (Death)
  Sender: FDA-Public Use
  Company Number: DE-ELI_LILLY_AND_COMPANY-DE200802006071

PATIENT
  Sex: Male

DRUGS (3)
  1. XIGRIS [Suspect]
     Indication: SEPSIS
     Dosage: 0.024 MG/KG, EVERY HOUR
     Route: 065
     Dates: start: 20080112, end: 20080116
  2. IMMUNOSUPPRESSIVE AGENTS [Concomitant]
     Indication: PULMONARY FIBROSIS
     Dosage: UNK, UNKNOWN
     Route: 065
  3. CORTISONE [Concomitant]
     Indication: PULMONARY FIBROSIS
     Dosage: UNK, UNKNOWN
     Route: 065

REACTIONS (1)
  - SEPTIC SHOCK [None]
